FAERS Safety Report 4704765-0 (Version None)
Quarter: 2005Q2

REPORT INFORMATION
  Report Type: 
  Country: None (occurrence: None)
  Receive Date: 20050630
  Receipt Date: 20050617
  Transmission Date: 20051028
  Serious: Yes (Death)
  Sender: FDA-Public Use
  Company Number: 200511832BCC

PATIENT
  Sex: Female
  Weight: 67.1324 kg

DRUGS (1)
  1. ALEVE [Suspect]
     Indication: PAIN
     Dosage: ORAL
     Route: 048

REACTIONS (1)
  - UNEVALUABLE EVENT [None]
